FAERS Safety Report 15773039 (Version 1)
Quarter: 2018Q4

REPORT INFORMATION
  Report Type: Spontaneous
  Country: US (occurrence: US)
  Receive Date: 20181228
  Receipt Date: 20181228
  Transmission Date: 20190205
  Serious: No
  Sender: FDA-Public Use
  Company Number: US-GE HEALTHCARE LIFE SCIENCES-2018CSU004307

PATIENT
  Age: 40 Year
  Sex: Female
  Weight: 64.85 kg

DRUGS (3)
  1. OMNIPAQUE [Suspect]
     Active Substance: IOHEXOL
     Indication: OEDEMA PERIPHERAL
     Dosage: 147 ML, SINGLE
     Route: 042
     Dates: start: 20180925, end: 20180925
  2. NAPROXEN. [Concomitant]
     Active Substance: NAPROXEN
     Indication: ANTIINFLAMMATORY THERAPY
     Dosage: 500 MG, UNK
     Route: 048
     Dates: start: 20180604
  3. OMNIPAQUE [Suspect]
     Active Substance: IOHEXOL
     Indication: VEIN DISORDER

REACTIONS (3)
  - Urticaria [Recovered/Resolved]
  - Throat irritation [Recovered/Resolved]
  - Cough [Recovered/Resolved]

NARRATIVE: CASE EVENT DATE: 20180925
